FAERS Safety Report 7826585-0 (Version None)
Quarter: 2011Q4

REPORT INFORMATION
  Report Type: 
  Country: None (occurrence: None)
  Receive Date: 20111020
  Receipt Date: 20110722
  Transmission Date: 20120403
  Serious: No
  Sender: FDA-Public Use
  Company Number: US-MYLANLABS-2011S1015432

PATIENT

DRUGS (1)
  1. TAMSULOSIN HCL [Suspect]
     Dates: start: 20110301

REACTIONS (1)
  - URINARY TRACT DISORDER [None]
